FAERS Safety Report 11911950 (Version 1)
Quarter: 2016Q1

REPORT INFORMATION
  Report Type: Report from Study
  Country: US (occurrence: US)
  Receive Date: 20160112
  Receipt Date: 20160112
  Transmission Date: 20160526
  Serious: Yes (Hospitalization)
  Sender: FDA-Public Use
  Company Number: US-PFIZER INC-2015306074

PATIENT
  Age: 56 Year
  Sex: Male

DRUGS (12)
  1. LISINOPRIL. [Concomitant]
     Active Substance: LISINOPRIL
     Indication: HYPERTENSION
     Dosage: 20 MG, DAILY
     Route: 048
     Dates: start: 199711
  2. VITAMIN D [Concomitant]
     Active Substance: CHOLECALCIFEROL
     Indication: EUPHORIC MOOD
     Dosage: 400 IU, ALTERNATE DAY
     Route: 048
     Dates: start: 199711
  3. HYDROXYUREA. [Concomitant]
     Active Substance: HYDROXYUREA
     Indication: HYPERURICAEMIA
     Dosage: 200 MG, 2X/DAY
     Route: 048
     Dates: start: 20150812, end: 20150828
  4. ALLOPURINOL. [Concomitant]
     Active Substance: ALLOPURINOL
     Indication: HYPERURICAEMIA
     Dosage: 300 MG, DAILY
     Route: 048
     Dates: start: 20150814, end: 20150828
  5. BOSUTINIB [Suspect]
     Active Substance: BOSUTINIB
     Indication: CHRONIC MYELOID LEUKAEMIA
     Dosage: 400 MG, 1X/DAY
     Route: 048
     Dates: start: 20150818, end: 20150829
  6. ZITHROMYCIN [Concomitant]
     Active Substance: AZITHROMYCIN ANHYDROUS
     Indication: SINUSITIS
     Dosage: 250 MG, DAILY
     Route: 048
     Dates: start: 20150810, end: 20150814
  7. MAGNESIUM [Concomitant]
     Active Substance: MAGNESIUM
     Indication: MUSCLE SPASMS
     Dosage: 250 MG, DAILY
     Route: 048
     Dates: start: 201202
  8. MULTIVITAMINS [Concomitant]
     Active Substance: VITAMINS
     Indication: EUPHORIC MOOD
     Dosage: 1 DF, ALTERNATE DAY
     Route: 048
     Dates: start: 1997
  9. CALCIUM VITAMIN C /00436301/ [Concomitant]
     Indication: EUPHORIC MOOD
     Dosage: 1 DF, ALTERNATE DAY
     Route: 048
     Dates: start: 1997
  10. LOPERAMIDE [Concomitant]
     Active Substance: LOPERAMIDE
     Dosage: 2 MG, AS NEEDED
     Route: 048
     Dates: start: 20150821, end: 20150829
  11. ATENOLOL. [Concomitant]
     Active Substance: ATENOLOL
     Indication: HEART RATE IRREGULAR
     Dosage: 100 MG, DAILY
     Route: 048
     Dates: start: 199711, end: 20150830
  12. ZYRTEC [Concomitant]
     Active Substance: CETIRIZINE HYDROCHLORIDE
     Indication: MULTIPLE ALLERGIES
     Dosage: 10 MG, DAILY
     Route: 048
     Dates: start: 201001

REACTIONS (1)
  - Tumour lysis syndrome [Recovered/Resolved]

NARRATIVE: CASE EVENT DATE: 20150828
